FAERS Safety Report 10258994 (Version 1)
Quarter: 2014Q2

REPORT INFORMATION
  Report Type: Report from Study
  Country: JP (occurrence: JP)
  Receive Date: 20140625
  Receipt Date: 20140625
  Transmission Date: 20141212
  Serious: Yes (Hospitalization)
  Sender: FDA-Public Use
  Company Number: JP-B.I. PHARMACEUTICALS,INC./RIDGEFIELD-2014-BI-27922NB

PATIENT
  Age: 86 Year
  Sex: Female
  Weight: 52.8 kg

DRUGS (10)
  1. TRAZENTA [Suspect]
     Indication: TYPE 2 DIABETES MELLITUS
     Dosage: 5 MG
     Route: 048
     Dates: start: 20131026
  2. GLIMICRON [Concomitant]
     Indication: TYPE 2 DIABETES MELLITUS
     Dosage: 10 MG
     Route: 048
     Dates: start: 20131102
  3. ATORVASTATIN [Concomitant]
     Dosage: 5 MG
     Route: 048
     Dates: end: 20140224
  4. PARIET [Concomitant]
     Indication: PROPHYLAXIS
     Dosage: 10 MG
     Route: 048
  5. MICARDIS [Concomitant]
     Dosage: 20 MG
     Route: 048
  6. BAYASPIRIN [Concomitant]
     Dosage: 100 MG
     Route: 048
  7. PLAVIX [Concomitant]
     Dosage: 75 MG
     Route: 048
  8. AMIODARONE HYDROCHLORIDE [Concomitant]
     Dosage: 200 MG
     Route: 048
  9. LASIX [Concomitant]
     Dosage: 20 MG
     Route: 048
     Dates: start: 20140324
  10. FEBURIC [Concomitant]
     Dosage: 10 MG
     Route: 048
     Dates: start: 20140325

REACTIONS (1)
  - Cardiac failure [Recovered/Resolved]
